FAERS Safety Report 5026741-3 (Version None)
Quarter: 2006Q2

REPORT INFORMATION
  Report Type: 
  Country: None (occurrence: None)
  Receive Date: 20060615
  Receipt Date: 20060614
  Transmission Date: 20061013
  Serious: Yes (Hospitalization)
  Sender: FDA-Public Use
  Company Number: AU-MERCK-0606AUS00055

PATIENT
  Age: 77 Year
  Sex: Female

DRUGS (4)
  1. ZOCOR [Suspect]
     Route: 065
  2. INSULIN [Concomitant]
     Route: 065
  3. MELOXICAM [Concomitant]
     Route: 065
  4. PIOGLITAZONE HYDROCHLORIDE [Suspect]
     Indication: DIABETES MELLITUS
     Route: 048
     Dates: start: 20040615, end: 20040715

REACTIONS (2)
  - BACK PAIN [None]
  - LIVER FUNCTION TEST ABNORMAL [None]
